FAERS Safety Report 17051044 (Version 1)
Quarter: 2019Q4

REPORT INFORMATION
  Report Type: Report from Study
  Country: None (occurrence: GR)
  Receive Date: 20191120
  Receipt Date: 20191120
  Transmission Date: 20200122
  Serious: Yes (Other)
  Sender: FDA-Public Use
  Company Number: GR-ABBVIE-17K-066-1862677-00

PATIENT
  Age: 65 Year
  Sex: Female

DRUGS (15)
  1. TAVOR [Concomitant]
     Indication: ANXIETY
     Route: 048
     Dates: start: 20160525
  2. THYROHORMONE [Concomitant]
     Active Substance: LEVOTHYROXINE SODIUM
     Indication: THYROID DISORDER
     Route: 048
     Dates: start: 1993
  3. DUODOPA [Suspect]
     Active Substance: CARBIDOPA\LEVODOPA
     Dosage: CR: 3.5ML/H; ED :2.5ML [THE PUMP OPERATES ON A 24H BASIS]
     Route: 050
  4. LEPONEX [Concomitant]
     Active Substance: CLOZAPINE
     Indication: DELUSION
     Route: 048
     Dates: start: 20160525
  5. COAPROVEL [Concomitant]
     Active Substance: HYDROCHLOROTHIAZIDE\IRBESARTAN
     Indication: HYPERTENSION
     Dosage: ONCE DAILY WHEN REQUIRED
     Route: 048
     Dates: start: 20160525
  6. TAVOR [Concomitant]
     Indication: PRODUCT USED FOR UNKNOWN INDICATION
     Dosage: 0.5 TABLET UPON STRESS AND CHEST PAIN
     Route: 048
  7. NEXIUM [Concomitant]
     Active Substance: ESOMEPRAZOLE MAGNESIUM
     Indication: PRODUCT USED FOR UNKNOWN INDICATION
     Route: 048
     Dates: start: 20160525
  8. NORVASC [Concomitant]
     Active Substance: AMLODIPINE BESYLATE
     Indication: HYPERTENSION
     Route: 048
  9. LEPONEX [Concomitant]
     Active Substance: CLOZAPINE
     Indication: PRODUCT USED FOR UNKNOWN INDICATION
  10. DUODOPA [Suspect]
     Active Substance: CARBIDOPA\LEVODOPA
     Dosage: CONTINUOUS RATE: 3.8ML/H; EXTRA DOSE: 2.5ML (24H USE OF THE PUMP)
     Route: 050
  11. ADALAT [Concomitant]
     Active Substance: NIFEDIPINE
     Indication: HYPERTENSION
     Dosage: WHEN BLOOD PRESSURE IS INCREASED
     Route: 048
     Dates: start: 20160525
  12. STELMINAL [Concomitant]
     Indication: DEPRESSION
     Route: 048
     Dates: start: 20160525
  13. DALFLON [Concomitant]
     Indication: PRODUCT USED FOR UNKNOWN INDICATION
     Route: 048
  14. DUODOPA [Suspect]
     Active Substance: CARBIDOPA\LEVODOPA
     Dosage: CONTINUOUS RATE: 3.6ML/H; EXTRA DOSE: 2.5ML (24H USE OF THE PUMP)
     Route: 050
  15. DUODOPA [Suspect]
     Active Substance: CARBIDOPA\LEVODOPA
     Indication: PARKINSON^S DISEASE
     Dosage: CONTINUOUS RATE: 4.5ML/H;
     Route: 050
     Dates: start: 2011

REACTIONS (9)
  - Abdominal pain lower [Not Recovered/Not Resolved]
  - Medical device battery replacement [Recovered/Resolved]
  - Nightmare [Recovering/Resolving]
  - Fall [Not Recovered/Not Resolved]
  - Hallucination [Recovering/Resolving]
  - Musculoskeletal stiffness [Not Recovered/Not Resolved]
  - Asthenia [Not Recovered/Not Resolved]
  - Mobility decreased [Recovered/Resolved]
  - Gait disturbance [Not Recovered/Not Resolved]

NARRATIVE: CASE EVENT DATE: 201909
